FAERS Safety Report 12748687 (Version 2)
Quarter: 2016Q4

REPORT INFORMATION
  Report Type: Spontaneous
  Country: US (occurrence: US)
  Receive Date: 20160915
  Receipt Date: 20161026
  Transmission Date: 20170207
  Serious: Yes (Hospitalization)
  Sender: FDA-Public Use
  Company Number: US-JNJFOC-20160912979

PATIENT
  Age: 51 Year
  Sex: Male
  Weight: 84.82 kg

DRUGS (1)
  1. XARELTO [Suspect]
     Active Substance: RIVAROXABAN
     Indication: PULMONARY EMBOLISM
     Route: 048
     Dates: start: 20130306, end: 20130722

REACTIONS (5)
  - Cerebrovascular accident [Unknown]
  - Haemorrhagic stroke [Unknown]
  - Carotid artery occlusion [Unknown]
  - Ischaemic stroke [Unknown]
  - Hemiparesis [Unknown]

NARRATIVE: CASE EVENT DATE: 201307
